FAERS Safety Report 20603261 (Version 1)
Quarter: 2022Q1

REPORT INFORMATION
  Report Type: Spontaneous
  Country: US (occurrence: US)
  Receive Date: 20220316
  Receipt Date: 20220316
  Transmission Date: 20220423
  Serious: No
  Sender: FDA-Public Use
  Company Number: US-BAYER-2022A038403

PATIENT
  Age: 66 Year
  Sex: Female

DRUGS (3)
  1. ALEVE [Suspect]
     Active Substance: NAPROXEN SODIUM
     Indication: Product used for unknown indication
     Dosage: UNK
  2. IMBRUVICA [Concomitant]
     Active Substance: IBRUTINIB
     Indication: B-cell lymphoma
     Dosage: 420 MG,1 IN 1
     Route: 048
     Dates: start: 202201
  3. CEFIXIME [Suspect]
     Active Substance: CEFIXIME

REACTIONS (5)
  - Back injury [Unknown]
  - Gingival bleeding [Unknown]
  - Mouth haemorrhage [Unknown]
  - Vaginal haemorrhage [Unknown]
  - Contusion [Recovering/Resolving]

NARRATIVE: CASE EVENT DATE: 20220101
